FAERS Safety Report 8599178-8 (Version None)
Quarter: 2012Q3

REPORT INFORMATION
  Report Type: 
  Country: None (occurrence: None)
  Receive Date: 20120816
  Receipt Date: 20120809
  Transmission Date: 20120928
  Serious: Yes (Hospitalization)
  Sender: FDA-Public Use
  Company Number: IL-ROCHE-794072

PATIENT
  Age: 61 Year
  Sex: Female
  Weight: 85 kg

DRUGS (3)
  1. ZELBORAF [Suspect]
     Route: 048
  2. ZELBORAF [Suspect]
     Indication: METASTATIC MALIGNANT MELANOMA
     Dosage: LAST DOSE PRIOR TO SAE - 28 JULY 2011
     Route: 048
     Dates: start: 20110718, end: 20110729
  3. PRAMIN [Concomitant]

REACTIONS (1)
  - ANAEMIA [None]
